FAERS Safety Report 6982162-5 (Version None)
Quarter: 2010Q3

REPORT INFORMATION
  Report Type: 
  Country: None (occurrence: None)
  Receive Date: 20100914
  Receipt Date: 20091215
  Transmission Date: 20110219
  Serious: No
  Sender: FDA-Public Use
  Company Number: US-PFIZER INC-2009286533

PATIENT
  Sex: Female
  Weight: 63.5 kg

DRUGS (5)
  1. LYRICA [Suspect]
     Indication: NERVE INJURY
     Dosage: 50MG IN THE MORNING, 50MG IN AFTERNOON AND 100MG AT NIGHT
     Route: 048
     Dates: start: 20090812
  2. LYRICA [Suspect]
     Indication: LIMB OPERATION
  3. CHANTIX [Suspect]
     Indication: EX-TOBACCO USER
     Dosage: 0.5 MG, 1X/DAY
     Route: 048
     Dates: start: 20091003
  4. VICODIN [Concomitant]
     Dosage: UNK
  5. OMEPRAZOLE [Concomitant]
     Dosage: UNK

REACTIONS (1)
  - DRUG INEFFECTIVE [None]
